FAERS Safety Report 4334022-6 (Version None)
Quarter: 2004Q2

REPORT INFORMATION
  Report Type: 
  Country: None (occurrence: None)
  Receive Date: 20040402
  Receipt Date: 20040319
  Transmission Date: 20050107
  Serious: Yes (Hospitalization, Other)
  Sender: FDA-Public Use
  Company Number: DSA_80590_2004

PATIENT
  Age: 55 Year
  Sex: Female
  Weight: 89 kg

DRUGS (8)
  1. XYREM [Suspect]
     Indication: NARCOLEPSY
     Dosage: 7.5 G NIGHTLY PO
     Route: 048
     Dates: start: 20040103, end: 20040309
  2. MAXZIDE [Concomitant]
  3. METHADONE HCL [Concomitant]
  4. TETRACYCLINE [Concomitant]
  5. ERYTHROMYCIN ETHYLSUCCINATE [Concomitant]
  6. MAXALT [Concomitant]
  7. CLARITIN [Concomitant]
  8. CLONAZEPAM [Concomitant]

REACTIONS (2)
  - CONVULSION [None]
  - MANIA [None]
